FAERS Safety Report 15999843 (Version 2)
Quarter: 2019Q1

REPORT INFORMATION
  Report Type: Spontaneous
  Country: US (occurrence: US)
  Receive Date: 20190225
  Receipt Date: 20190314
  Transmission Date: 20190418
  Serious: Yes (Other)
  Sender: FDA-Public Use
  Company Number: US-MERZ NORTH AMERICA, INC.-19MRZ-00080

PATIENT
  Age: 50 Year
  Sex: Female

DRUGS (1)
  1. XEOMIN [Suspect]
     Active Substance: INCOBOTULINUMTOXINA
     Indication: PRODUCT USED FOR UNKNOWN INDICATION
     Dosage: RECEIVES REGULARLY EVERY 3-4 MONTHS

REACTIONS (6)
  - Face injury [Recovering/Resolving]
  - Erythema [Unknown]
  - Dizziness [Recovering/Resolving]
  - Hypersensitivity [Recovering/Resolving]
  - Injection site inflammation [Unknown]
  - Pain [Unknown]

NARRATIVE: CASE EVENT DATE: 20190217
